FAERS Safety Report 20746000 (Version 2)
Quarter: 2022Q3

REPORT INFORMATION
  Report Type: Spontaneous
  Country: CN (occurrence: CN)
  Receive Date: 20220425
  Receipt Date: 20220726
  Transmission Date: 20221027
  Serious: Yes (Other)
  Sender: FDA-Public Use
  Company Number: CN-NOVARTISPH-NVSC2022CN095242

PATIENT

DRUGS (2)
  1. COSENTYX [Suspect]
     Active Substance: SECUKINUMAB
     Indication: Psoriasis
     Dosage: MONOTHERAPY,ONCE A WEEK BSELNE ND AT W1,2,3,4
     Route: 065
  2. COSENTYX [Suspect]
     Active Substance: SECUKINUMAB
     Dosage: 300 MG PERTIME(THEN ADJUSTED TO Q4W)
     Route: 065

REACTIONS (1)
  - Lymphadenitis bacterial [Not Recovered/Not Resolved]
